FAERS Safety Report 16853762 (Version 1)
Quarter: 2019Q4

REPORT INFORMATION
  Report Type: Spontaneous
  Country: US (occurrence: US)
  Receive Date: 20190910
  Receipt Date: 20190910
  Transmission Date: 20200122
  Serious: No
  Sender: FDA-Public Use
  Company Number: None

PATIENT

DRUGS (1)
  1. MALE GENITAL DESENSITIZER STUD 100 [Suspect]
     Active Substance: LIDOCAINE
     Indication: MALE SEXUAL DYSFUNCTION
     Route: 061

REACTIONS (1)
  - Product formulation issue [None]
